FAERS Safety Report 5223677-X (Version None)
Quarter: 2007Q1

REPORT INFORMATION
  Report Type: 
  Country: None (occurrence: None)
  Receive Date: 20070130
  Receipt Date: 20070118
  Transmission Date: 20070707
  Serious: Yes (Other)
  Sender: FDA-Public Use
  Company Number: PHNR2007AU00516

PATIENT
  Sex: Female

DRUGS (2)
  1. SOTALOL HCL [Concomitant]
     Indication: ATRIAL FIBRILLATION
  2. EXJADE [Suspect]
     Dosage: 500 MG, QD
     Route: 048

REACTIONS (4)
  - ATRIAL FIBRILLATION [None]
  - DIARRHOEA [None]
  - DYSPEPSIA [None]
  - NAUSEA [None]
